FAERS Safety Report 4555532-2 (Version None)
Quarter: 2005Q1

REPORT INFORMATION
  Report Type: 
  Country: None (occurrence: None)
  Receive Date: 20050119
  Receipt Date: 20041213
  Transmission Date: 20050727
  Serious: Yes (Hospitalization)
  Sender: FDA-Public Use
  Company Number: FR-BRISTOL-MYERS SQUIBB COMPANY-12799458

PATIENT
  Age: 49 Year
  Sex: Male

DRUGS (10)
  1. VINFLUNINE IV [Suspect]
     Indication: NON-SMALL CELL LUNG CANCER
     Dosage: ACTUAL DOSE WAS 499 MG.
     Route: 042
     Dates: start: 20040623
  2. CARBOPLATIN [Suspect]
     Indication: NON-SMALL CELL LUNG CANCER
     Dosage: ADM AS AUC 5
     Route: 042
     Dates: start: 20040623
  3. EFFERALGAN [Concomitant]
     Route: 048
     Dates: start: 20040601
  4. ZOPHREN [Concomitant]
     Dosage: ALSO REC'D MEDICATION FROM 02-JUN-04 TO 05-JUN-04.
     Route: 042
     Dates: start: 20040623
  5. SOLU-MEDROL [Concomitant]
     Route: 042
     Dates: start: 20040623
  6. ARANESP [Concomitant]
     Dates: start: 20040601
  7. SILOMAT [Concomitant]
     Dates: start: 20040602
  8. ANAUSIN [Concomitant]
     Dates: start: 20040602, end: 20040605
  9. MOVICOL [Concomitant]
     Dates: start: 20040602, end: 20040606
  10. PERISTALTINE [Concomitant]
     Dates: start: 20040602, end: 20040606

REACTIONS (5)
  - BRADYCARDIA [None]
  - HEART RATE INCREASED [None]
  - HYPOTENSION [None]
  - INFUSION RELATED REACTION [None]
  - SYNCOPE VASOVAGAL [None]
